FAERS Safety Report 24939265 (Version 2)
Quarter: 2025Q1

REPORT INFORMATION
  Report Type: Spontaneous
  Country: IL (occurrence: IL)
  Receive Date: 20250206
  Receipt Date: 20250307
  Transmission Date: 20250408
  Serious: Yes (Death)
  Sender: ABBVIE
  Company Number: IL-ABBVIE-6122609

PATIENT
  Age: 89 Year
  Sex: Male

DRUGS (1)
  1. VENCLEXTA [Suspect]
     Active Substance: VENETOCLAX
     Indication: Chronic lymphocytic leukaemia
     Route: 048

REACTIONS (3)
  - Sepsis [Fatal]
  - Oedema peripheral [Unknown]
  - Unevaluable event [Unknown]
